FAERS Safety Report 18842946 (Version 1)
Quarter: 2021Q1

REPORT INFORMATION
  Report Type: Spontaneous
  Country: US (occurrence: US)
  Receive Date: 20210203
  Receipt Date: 20210203
  Transmission Date: 20210419
  Serious: Yes (Hospitalization)
  Sender: FDA-Public Use
  Company Number: US-ELI_LILLY_AND_COMPANY-US202101011491

PATIENT
  Age: 69 Year
  Sex: Female
  Weight: 116 kg

DRUGS (1)
  1. BAMLANIVIMAB 700MG [Suspect]
     Active Substance: BAMLANIVIMAB
     Indication: COVID-19
     Dosage: 700 MG, SINGLE
     Route: 042
     Dates: start: 20210125, end: 20210125

REACTIONS (3)
  - Asthenia [Unknown]
  - Dyspnoea exertional [Unknown]
  - Disturbance in attention [Unknown]
